FAERS Safety Report 7783578-X (Version None)
Quarter: 2011Q3

REPORT INFORMATION
  Report Type: 
  Country: None (occurrence: None)
  Receive Date: 20110928
  Receipt Date: 20110509
  Transmission Date: 20111222
  Serious: No
  Sender: FDA-Public Use
  Company Number: US-TYCO HEALTHCARE/MALLINCKRODT-T201100872

PATIENT
  Sex: Male

DRUGS (3)
  1. HYDROCHLOROTHIAZIDE [Concomitant]
     Indication: HYPERTENSION
  2. LISINOPRIL [Concomitant]
     Indication: HYPERTENSION
  3. HYDROMORPHONE HCL [Suspect]
     Indication: NEUROPATHY PERIPHERAL
     Dosage: 2 MG, TID
     Route: 048
     Dates: start: 20101001

REACTIONS (3)
  - DRUG SCREEN NEGATIVE [None]
  - DRUG EFFECT DECREASED [None]
  - DRUG INEFFECTIVE [None]
